FAERS Safety Report 21921552 (Version 1)
Quarter: 2023Q1

REPORT INFORMATION
  Report Type: Spontaneous
  Country: PT (occurrence: PT)
  Receive Date: 20230127
  Receipt Date: 20230127
  Transmission Date: 20230417
  Serious: Yes (Other)
  Sender: FDA-Public Use
  Company Number: PT-AUROBINDO-AUR-APL-2022-053763

PATIENT
  Age: 25 Year
  Sex: Male

DRUGS (3)
  1. VINORELBINE [Suspect]
     Active Substance: VINORELBINE TARTRATE
     Indication: Hodgkin^s disease
     Dosage: UNK
     Route: 065
  2. GEMCITABINE [Suspect]
     Active Substance: GEMCITABINE
     Indication: Hodgkin^s disease
     Dosage: UNK
     Route: 065
  3. DOXORUBICIN [Concomitant]
     Active Substance: DOXORUBICIN
     Indication: Hodgkin^s disease
     Dosage: UNK
     Route: 065

REACTIONS (7)
  - Haemolytic anaemia [Unknown]
  - Renal impairment [Recovering/Resolving]
  - Thrombocytopenia [Unknown]
  - Thrombotic microangiopathy [Unknown]
  - Proteinuria [Unknown]
  - Skin lesion [Recovered/Resolved]
  - Off label use [Unknown]
